FAERS Safety Report 7754300-8 (Version None)
Quarter: 2011Q3

REPORT INFORMATION
  Report Type: 
  Country: None (occurrence: None)
  Receive Date: 20110913
  Receipt Date: 20110901
  Transmission Date: 20111222
  Serious: Yes (Death, Hospitalization)
  Sender: FDA-Public Use
  Company Number: UTC-009931

PATIENT
  Age: 30 Year
  Sex: Female
  Weight: 86.36 kg

DRUGS (4)
  1. REMODULIN [Suspect]
     Indication: PULMONARY ARTERIAL HYPERTENSION
     Dosage: 15.84 UG/KG (0.011 UG/KG, 1 IN 1 MIN) ,SUBCUTANEOUS
     Route: 058
     Dates: start: 20070402
  2. COUMADIN [Concomitant]
  3. TRACLEER [Concomitant]
  4. DIURETICS (DIURETICS) [Concomitant]

REACTIONS (1)
  - DEATH [None]
